FAERS Safety Report 5670231-1 (Version None)
Quarter: 2008Q1

REPORT INFORMATION
  Report Type: 
  Country: None (occurrence: None)
  Receive Date: 20080314
  Receipt Date: 20080314
  Transmission Date: 20080703
  Serious: Yes (Death, Hospitalization)
  Sender: FDA-Public Use
  Company Number: None

PATIENT
  Age: 72 Year
  Sex: Male
  Weight: 70.489 kg

DRUGS (6)
  1. PEMETREXED [Suspect]
     Indication: SQUAMOUS CELL CARCINOMA
     Dosage: 920 MG ONCE IV
     Route: 042
     Dates: start: 20071113
  2. GEMCITABINE [Suspect]
     Dosage: 2760 MG ONCE IV
     Route: 042
     Dates: start: 20071113
  3. XALATAN [Concomitant]
  4. COZAAR [Concomitant]
  5. COLCHICINE [Concomitant]
  6. OXYCODONE HCL [Concomitant]

REACTIONS (12)
  - BACK PAIN [None]
  - CERVICAL VERTEBRAL FRACTURE [None]
  - DYSPHONIA [None]
  - FALL [None]
  - GENERAL PHYSICAL HEALTH DETERIORATION [None]
  - HEPATIC FUNCTION ABNORMAL [None]
  - MENTAL STATUS CHANGES [None]
  - METASTASES TO SPINE [None]
  - METASTATIC PAIN [None]
  - NECK PAIN [None]
  - PATHOLOGICAL FRACTURE [None]
  - PYREXIA [None]
